FAERS Safety Report 4514176-9 (Version None)
Quarter: 2004Q4

REPORT INFORMATION
  Report Type: 
  Country: None (occurrence: None)
  Receive Date: 20041129
  Receipt Date: 20041112
  Transmission Date: 20050328
  Serious: Yes (Other)
  Sender: FDA-Public Use
  Company Number: TRP_0034_2004

PATIENT
  Age: 43 Year
  Sex: Female
  Weight: 67.1324 kg

DRUGS (5)
  1. RIBASPHERE [Suspect]
     Indication: HEPATITIS C
     Dosage: DF PO
     Route: 048
     Dates: start: 20040907
  2. PEG-INTRON [Suspect]
     Indication: HEPATITIS C
     Dosage: DF SC
     Route: 058
     Dates: start: 20040907
  3. BUTABARBITAL [Concomitant]
  4. NORCO [Concomitant]
  5. VALIUM [Concomitant]

REACTIONS (3)
  - CONDITION AGGRAVATED [None]
  - RHEUMATOID ARTHRITIS [None]
  - WEIGHT DECREASED [None]
